FAERS Safety Report 6988335-X (Version None)
Quarter: 2010Q3

REPORT INFORMATION
  Report Type: 
  Country: None (occurrence: None)
  Receive Date: 20100916
  Receipt Date: 20100908
  Transmission Date: 20110219
  Serious: Yes (Hospitalization, Other)
  Sender: FDA-Public Use
  Company Number: US-BAYER-201019933BCC

PATIENT
  Age: 78 Year
  Sex: Female

DRUGS (26)
  1. ASPIRIN [Suspect]
     Indication: ROUTINE HEALTH MAINTENANCE
     Dosage: TOTAL DAILY DOSE: 81 MG  UNIT DOSE: 81 MG
     Route: 048
     Dates: start: 19680101
  2. IBUPROFEN [Suspect]
     Indication: ARTHRITIS
     Route: 048
     Dates: start: 20000101
  3. BAPINEUZUMAB VS. PLACEBO [Suspect]
     Route: 065
     Dates: end: 20090911
  4. FOSAMAX [Suspect]
     Indication: OSTEOPOROSIS
     Route: 048
     Dates: start: 20030101, end: 20090927
  5. EXEION [Concomitant]
     Route: 065
  6. NAMENDA [Concomitant]
     Route: 065
  7. LISINOPRIL [Concomitant]
     Route: 065
  8. LEVOTHYROXINE [Concomitant]
     Route: 065
  9. CEREFOLIN N-ACETYL CYSTEIN [Concomitant]
     Route: 065
  10. VERAPAMIL [Concomitant]
     Route: 065
  11. OMEPRAZOLE DR [Concomitant]
     Route: 065
  12. AGGRENOX [Concomitant]
     Route: 065
  13. OXYBUTYNIN [Concomitant]
     Route: 065
  14. VESICARE [Concomitant]
     Route: 065
  15. VICODIN [Concomitant]
     Route: 065
  16. ATACAND [Concomitant]
     Route: 065
  17. MECLIZINE [Concomitant]
     Route: 065
  18. ULTRA NUTRIENT [Concomitant]
     Route: 065
  19. COENZYME Q10 [Concomitant]
     Route: 065
  20. DEHYDROEPIANDROSTERONE [Concomitant]
     Route: 065
  21. L-CARNITINE [Concomitant]
     Route: 065
  22. PERFECT MULTI GREENS [Concomitant]
     Route: 065
  23. LOVAZA [Concomitant]
     Route: 065
  24. S-ADENOSYL METHIONINE [Concomitant]
     Route: 065
  25. ARGININE TR PLUS [Concomitant]
     Route: 065
  26. LYCOPENE [Concomitant]
     Route: 065

REACTIONS (7)
  - GASTRIC ULCER [None]
  - GASTRITIS [None]
  - HAEMATEMESIS [None]
  - HAEMORRHAGIC ANAEMIA [None]
  - MELAENA [None]
  - SYNCOPE [None]
  - UPPER GASTROINTESTINAL HAEMORRHAGE [None]
